FAERS Safety Report 25020040 (Version 1)
Quarter: 2025Q1

REPORT INFORMATION
  Report Type: Report from Study
  Country: US (occurrence: US)
  Receive Date: 20250227
  Receipt Date: 20250227
  Transmission Date: 20250408
  Serious: Yes (Death, Other)
  Sender: GILEAD
  Company Number: US-GILEAD-2025-0705323

PATIENT
  Sex: Female

DRUGS (1)
  1. AZTREONAM LYSINE [Suspect]
     Active Substance: AZTREONAM LYSINE
     Indication: Cystic fibrosis
     Dosage: INHALE CONTENTS OF 1 VIAL (75MG) VIA PARI ALTERA NEBULIZER TID FOR 28 DAYS ON AND 28 DAYS OFF
     Route: 055
     Dates: start: 20191204

REACTIONS (1)
  - Death [Fatal]
